FAERS Safety Report 7631328-X (Version None)
Quarter: 2011Q3

REPORT INFORMATION
  Report Type: 
  Country: None (occurrence: None)
  Receive Date: 20110701
  Receipt Date: 20101117
  Transmission Date: 20111222
  Serious: Yes (Other)
  Sender: FDA-Public Use
  Company Number: 7028460

PATIENT
  Age: 37 Year
  Sex: Female
  Weight: 109 kg

DRUGS (6)
  1. CYMBALTA [Suspect]
     Indication: DEPRESSION
     Dosage: 60 MG, 1 IN 1 D, ORAL
     Route: 048
  2. PRIMIDONE [Concomitant]
  3. TIZANIDINE HCL [Concomitant]
  4. REBIF [Suspect]
     Indication: RELAPSING-REMITTING MULTIPLE SCLEROSIS
     Dosage: 44 MCG, 3 IN 1 WK, SUBCUTANEOUS, 22 MCG, 3 IN 1 WK, SUBCUTANEOUS
     Route: 058
     Dates: start: 20100909, end: 20100101
  5. REBIF [Suspect]
     Indication: RELAPSING-REMITTING MULTIPLE SCLEROSIS
     Dosage: 44 MCG, 3 IN 1 WK, SUBCUTANEOUS, 22 MCG, 3 IN 1 WK, SUBCUTANEOUS
     Route: 058
     Dates: start: 20101118
  6. BIRTH CONTROL (ALL OTHER THERAPEUTIC PRODUCTS) [Concomitant]

REACTIONS (2)
  - SUICIDAL IDEATION [None]
  - DEPRESSION [None]
